FAERS Safety Report 5536351-7 (Version None)
Quarter: 2007Q4

REPORT INFORMATION
  Report Type: 
  Country: None (occurrence: None)
  Receive Date: 20071204
  Receipt Date: 20071120
  Transmission Date: 20080405
  Serious: Yes (Death)
  Sender: FDA-Public Use
  Company Number: 2007AP001377

PATIENT
  Age: 52 Year
  Sex: Male

DRUGS (1)
  1. LACTULOSE [Suspect]
     Indication: HEPATIC ENCEPHALOPATHY
     Dosage: ;1X;RTL
     Route: 054

REACTIONS (3)
  - LOWER GASTROINTESTINAL HAEMORRHAGE [None]
  - PROCEDURAL COMPLICATION [None]
  - RECTAL FISSURE [None]
